FAERS Safety Report 22010942 (Version 2)
Quarter: 2023Q1

REPORT INFORMATION
  Report Type: Spontaneous
  Country: US (occurrence: US)
  Receive Date: 20230220
  Receipt Date: 20230317
  Transmission Date: 20230418
  Serious: No
  Sender: FDA-Public Use
  Company Number: US-SA-SAC20230215001291

PATIENT
  Sex: Male

DRUGS (1)
  1. DUPIXENT [Suspect]
     Active Substance: DUPILUMAB
     Dosage: 200 MG, FREQUENCY: OTHER
     Route: 058

REACTIONS (3)
  - Injection site irritation [Recovered/Resolved]
  - Injection site pain [Unknown]
  - Drug ineffective [Unknown]
